FAERS Safety Report 21085050 (Version 1)
Quarter: 2022Q3

REPORT INFORMATION
  Report Type: Spontaneous
  Country: US (occurrence: US)
  Receive Date: 20220714
  Receipt Date: 20220714
  Transmission Date: 20221026
  Serious: No
  Sender: FDA-Public Use
  Company Number: US-SANOFI-01185337

PATIENT
  Age: 85 Year
  Sex: Female

DRUGS (1)
  1. AVAPRO [Suspect]
     Active Substance: IRBESARTAN
     Indication: Hypertension

REACTIONS (1)
  - Abdominal discomfort [Unknown]
